FAERS Safety Report 9716864 (Version 1)
Quarter: 2013Q4

REPORT INFORMATION
  Report Type: Spontaneous
  Country: US (occurrence: US)
  Receive Date: 20131127
  Receipt Date: 20131127
  Transmission Date: 20140711
  Serious: Yes (Death, Hospitalization)
  Sender: FDA-Public Use
  Company Number: US-IPSEN BIOPHARMACEUTICALS, INC.-2013-5193

PATIENT
  Age: 57 Year
  Sex: Male

DRUGS (1)
  1. LANREOTIDE [Suspect]
     Indication: ACROMEGALY
     Dosage: NOT REPORTED
     Route: 065

REACTIONS (3)
  - Pneumonia [Fatal]
  - Abdominal distension [Fatal]
  - Diarrhoea [Unknown]
